FAERS Safety Report 5360254-4 (Version None)
Quarter: 2007Q2

REPORT INFORMATION
  Report Type: 
  Country: None (occurrence: None)
  Receive Date: 20070618
  Receipt Date: 20070613
  Transmission Date: 20071010
  Serious: No
  Sender: FDA-Public Use
  Company Number: US-ELI_LILLY_AND_COMPANY-US200706003122

PATIENT
  Age: 47 Year
  Sex: Female

DRUGS (2)
  1. ZYPREXA [Suspect]
     Indication: SCHIZOPHRENIA
     Dosage: 15 MG, UNK
     Dates: start: 20070201, end: 20070606
  2. ZYPREXA [Suspect]
     Dosage: 20 MG, UNK
     Dates: start: 20070201, end: 20070606

REACTIONS (4)
  - DIABETES MELLITUS [None]
  - NAIL BED BLEEDING [None]
  - NAIL DISCOLOURATION [None]
  - PRESCRIBED OVERDOSE [None]
